FAERS Safety Report 10511178 (Version 2)
Quarter: 2014Q4

REPORT INFORMATION
  Report Type: Spontaneous
  Country: US (occurrence: None)
  Receive Date: 20141002
  Receipt Date: 20141224
  Transmission Date: 20150528
  Serious: Yes (Other)
  Sender: FDA-Public Use
  Company Number: PHEH2014US015635

PATIENT
  Age: 84 Year
  Sex: Female

DRUGS (18)
  1. CRESTOR [Concomitant]
     Active Substance: ROSUVASTATIN CALCIUM
  2. CENTRUM SILVER [Concomitant]
     Active Substance: VITAMINS
  3. AFINITOR [Suspect]
     Active Substance: EVEROLIMUS
     Indication: PRODUCT USED FOR UNKNOWN INDICATION
     Dates: start: 20140715
  4. CITRICAL [Concomitant]
     Active Substance: CALCIUM CITRATE
  5. MAGNESIUM [Concomitant]
     Active Substance: MAGNESIUM
  6. APRESOLINE HYDROCHLORIDE [Concomitant]
     Active Substance: HYDRALAZINE HYDROCHLORIDE
  7. PROTONIX [Concomitant]
     Active Substance: PANTOPRAZOLE SODIUM
  8. PLAVIX [Concomitant]
     Active Substance: CLOPIDOGREL BISULFATE
  9. METFORMIN HCL [Concomitant]
     Active Substance: METFORMIN HYDROCHLORIDE
  10. BIOTIN [Concomitant]
     Active Substance: BIOTIN
  11. VITAMIN C [Concomitant]
     Active Substance: ASCORBIC ACID
  12. EXEMESTANE. [Concomitant]
     Active Substance: EXEMESTANE
  13. BABY ASPIRIN [Concomitant]
     Active Substance: ASPIRIN
  14. CALCIUM CITRATE [Concomitant]
     Active Substance: CALCIUM CITRATE
  15. FISH OIL [Concomitant]
     Active Substance: FISH OIL
  16. METOPROLOL [Concomitant]
     Active Substance: METOPROLOL
  17. CALCIUM [Concomitant]
     Active Substance: CALCIUM
  18. VITAMIN D [Concomitant]
     Active Substance: CHOLECALCIFEROL

REACTIONS (4)
  - Diabetes mellitus [None]
  - Oral herpes [None]
  - Blood glucose increased [None]
  - Contusion [None]
